FAERS Safety Report 6871442-X (Version None)
Quarter: 2010Q3

REPORT INFORMATION
  Report Type: 
  Country: None (occurrence: None)
  Receive Date: 20100721
  Receipt Date: 20100709
  Transmission Date: 20110219
  Serious: Yes (Hospitalization)
  Sender: FDA-Public Use
  Company Number: 015351

PATIENT
  Sex: Male
  Weight: 93 kg

DRUGS (9)
  1. CIMZIA [Suspect]
     Indication: CROHN'S DISEASE
     Dosage: (400 MG 1X/MONTH SUBCUTANEOUS)
     Route: 058
     Dates: start: 20091001
  2. METFORMIN HCL [Concomitant]
  3. LISINOPRIL [Concomitant]
  4. ATENOLOL [Concomitant]
  5. ZOCOR [Concomitant]
  6. ASPIRIN CHILDREN [Concomitant]
  7. GLIPIZIDE [Concomitant]
  8. FISH OIL [Concomitant]
  9. DAILY MULTIVITAMIN [Concomitant]

REACTIONS (2)
  - DRUG INEFFECTIVE [None]
  - RENAL CANCER [None]
